FAERS Safety Report 4389909-5 (Version None)
Quarter: 2004Q2

REPORT INFORMATION
  Report Type: 
  Country: None (occurrence: None)
  Receive Date: 20040630
  Receipt Date: 20040623
  Transmission Date: 20050107
  Serious: Yes (Hospitalization)
  Sender: FDA-Public Use
  Company Number: 2004042038

PATIENT
  Sex: Female

DRUGS (1)
  1. DOZILE (DOXYLAMINE SUCCINATE) [Suspect]
     Dosage: ORAL
     Route: 048

REACTIONS (1)
  - HYPERSENSITIVITY [None]
